FAERS Safety Report 23588176 (Version 1)
Quarter: 2024Q1

REPORT INFORMATION
  Report Type: Spontaneous
  Country: AU (occurrence: AU)
  Receive Date: 20240302
  Receipt Date: 20240302
  Transmission Date: 20240410
  Serious: Yes (Other)
  Sender: FDA-Public Use
  Company Number: AU-TEVA-VS-3148508

PATIENT
  Age: 80 Year
  Sex: Male

DRUGS (1)
  1. FENTANYL [Suspect]
     Active Substance: FENTANYL\FENTANYL CITRATE
     Indication: Product used for unknown indication
     Route: 065

REACTIONS (4)
  - Pneumonia [Unknown]
  - Chest pain [Unknown]
  - Respiratory failure [Unknown]
  - Sedation [Unknown]
